FAERS Safety Report 7490387-8 (Version None)
Quarter: 2011Q2

REPORT INFORMATION
  Report Type: 
  Country: None (occurrence: None)
  Receive Date: 20110519
  Receipt Date: 20110503
  Transmission Date: 20111010
  Serious: No
  Sender: FDA-Public Use
  Company Number: US-B.I. PHARMACEUTICALS,INC./RIDGEFIELD-2011-BP-12325BP

PATIENT
  Sex: Female

DRUGS (10)
  1. CENTRUM [Concomitant]
     Indication: SUPPLEMENTATION THERAPY
  2. CHONDROITIN [Concomitant]
     Indication: SUPPLEMENTATION THERAPY
  3. RYTHMOL [Concomitant]
     Indication: CARDIAC DISORDER
     Dosage: 450 MG
  4. VITAMIN D [Concomitant]
     Indication: SUPPLEMENTATION THERAPY
  5. I-131 [Concomitant]
     Indication: THYROID CANCER
  6. SYNTHROID [Concomitant]
     Indication: THYROID DISORDER
     Dosage: 175 MG
  7. PRILOSEC [Concomitant]
     Indication: ABDOMINAL DISCOMFORT
     Dosage: 20 MG
  8. SIMVASTATIN [Concomitant]
     Indication: HYPERCHOLESTEROLAEMIA
     Dosage: 20 MG
  9. CALCIUM CARBONATE [Concomitant]
     Indication: SUPPLEMENTATION THERAPY
  10. PRADAXA [Suspect]
     Indication: ATRIAL FIBRILLATION
     Dosage: 300 MG
     Route: 048
     Dates: start: 20110311

REACTIONS (2)
  - DIZZINESS [None]
  - ABDOMINAL DISCOMFORT [None]
